FAERS Safety Report 25863372 (Version 1)
Quarter: 2025Q3

REPORT INFORMATION
  Report Type: Spontaneous
  Country: CA (occurrence: CA)
  Receive Date: 20250930
  Receipt Date: 20250930
  Transmission Date: 20251020
  Serious: Yes (Other)
  Sender: RANBAXY
  Company Number: CA-SUN PHARMACEUTICAL INDUSTRIES LTD-2025R1-528837

PATIENT
  Age: 40 Year
  Sex: Female

DRUGS (2)
  1. FUROSEMIDE [Suspect]
     Active Substance: FUROSEMIDE
     Indication: Diuretic therapy
     Dosage: 20 MILLIGRAM, QID
     Route: 042
  2. AMILORIDE [Suspect]
     Active Substance: AMILORIDE
     Indication: Diuretic therapy
     Dosage: 10 MILLIGRAM, BID
     Route: 065

REACTIONS (1)
  - Therapy non-responder [Unknown]
